FAERS Safety Report 15965730 (Version 2)
Quarter: 2019Q1

REPORT INFORMATION
  Report Type: Spontaneous
  Country: US (occurrence: US)
  Receive Date: 20190215
  Receipt Date: 20190227
  Transmission Date: 20190418
  Serious: No
  Sender: FDA-Public Use
  Company Number: US-009507513-1902USA004120

PATIENT
  Sex: Female
  Weight: 84.35 kg

DRUGS (1)
  1. ASMANEX [Suspect]
     Active Substance: MOMETASONE FUROATE
     Indication: ASTHMA
     Dosage: 1 PUFF INHALATION; MORNING AND AT BEDTIME
     Route: 055
     Dates: start: 20181123

REACTIONS (4)
  - No adverse event [Unknown]
  - Product dose omission [Unknown]
  - Product odour abnormal [Unknown]
  - Poor quality device used [Unknown]
